FAERS Safety Report 6310719-3 (Version None)
Quarter: 2009Q3

REPORT INFORMATION
  Report Type: 
  Country: None (occurrence: None)
  Receive Date: 20090811
  Receipt Date: 20090728
  Transmission Date: 20100115
  Serious: Yes (Hospitalization)
  Sender: FDA-Public Use
  Company Number: 230456K09BRA

PATIENT
  Age: 26 Year
  Sex: Female

DRUGS (1)
  1. REBIF [Suspect]
     Indication: RELAPSING-REMITTING MULTIPLE SCLEROSIS
     Dosage: 44 MCG, 3 IN 1 WEEKS
     Dates: start: 20030301

REACTIONS (8)
  - AGEUSIA [None]
  - ANAEMIA [None]
  - APHAGIA [None]
  - DIZZINESS [None]
  - FLUID INTAKE REDUCED [None]
  - TREATMENT NONCOMPLIANCE [None]
  - VISION BLURRED [None]
  - VOMITING [None]
